FAERS Safety Report 7814686-2 (Version None)
Quarter: 2011Q4

REPORT INFORMATION
  Report Type: 
  Country: None (occurrence: None)
  Receive Date: 20111014
  Receipt Date: 20111007
  Transmission Date: 20120403
  Serious: Yes (Other)
  Sender: FDA-Public Use
  Company Number: DE-PFIZER INC-2011240641

PATIENT

DRUGS (1)
  1. TYGACIL [Suspect]

REACTIONS (1)
  - UROSEPSIS [None]
